FAERS Safety Report 12206914 (Version 3)
Quarter: 2016Q2

REPORT INFORMATION
  Report Type: Spontaneous
  Country: US (occurrence: US)
  Receive Date: 20160324
  Receipt Date: 20160413
  Transmission Date: 20160815
  Serious: Yes (Other)
  Sender: FDA-Public Use
  Company Number: US-MDT-ADR-2016-00548

PATIENT
  Age: 26 Year
  Sex: Female

DRUGS (2)
  1. BACLOFEN. [Suspect]
     Active Substance: BACLOFEN
     Route: 048
  2. LIORESAL [Suspect]
     Active Substance: BACLOFEN
     Dosage: 1301 MCG/DAY
     Route: 037

REACTIONS (6)
  - Muscle spasms [Unknown]
  - Nausea [Unknown]
  - No therapeutic response [Unknown]
  - Vomiting [Unknown]
  - Drug withdrawal syndrome [Unknown]
  - Pruritus [Unknown]

NARRATIVE: CASE EVENT DATE: 20160314
